FAERS Safety Report 20359684 (Version 1)
Quarter: 2022Q1

REPORT INFORMATION
  Report Type: Spontaneous
  Country: GB (occurrence: GB)
  Receive Date: 20220121
  Receipt Date: 20220121
  Transmission Date: 20220424
  Serious: Yes (Other)
  Sender: FDA-Public Use
  Company Number: None

PATIENT

DRUGS (1)
  1. AMLODIPINE [Suspect]
     Active Substance: AMLODIPINE BESYLATE
     Indication: Product used for unknown indication

REACTIONS (5)
  - Dyspnoea [Recovered/Resolved]
  - Thirst [Recovered/Resolved]
  - Renal pain [Recovered/Resolved]
  - Middle insomnia [Recovered/Resolved]
  - Ocular discomfort [Recovered/Resolved]
